FAERS Safety Report 8244739 (Version 2)
Quarter: 2013Q1

REPORT INFORMATION
  Report Type: Spontaneous
  Country: US (occurrence: US)
  Receive Date: 20111115
  Receipt Date: 20130121
  Transmission Date: 20140127
  Serious: No
  Sender: FDA-Public Use
  Company Number: US-ELI_LILLY_AND_COMPANY-US201107003399

PATIENT
  Sex: Female

DRUGS (4)
  1. FORTEO [Suspect]
     Indication: OSTEOPOROSIS
     Dosage: 20 UG, QD
     Route: 065
     Dates: start: 201101
  2. FORTEO [Suspect]
     Dosage: 20 UG, QD
     Dates: start: 201101
  3. FORTEO [Suspect]
     Dosage: 20 UG, QD
     Route: 065
     Dates: start: 201101
  4. FORTEO [Suspect]
     Dosage: 20 UG, QD
     Dates: start: 201101

REACTIONS (6)
  - Pain in extremity [Not Recovered/Not Resolved]
  - Arthralgia [Not Recovered/Not Resolved]
  - Arthralgia [Unknown]
  - Pain [Unknown]
  - Dizziness [Unknown]
  - Nail disorder [Unknown]
